FAERS Safety Report 14074091 (Version 1)
Quarter: 2017Q4

REPORT INFORMATION
  Report Type: Spontaneous
  Country: US (occurrence: US)
  Receive Date: 20171010
  Receipt Date: 20171010
  Transmission Date: 20180321
  Serious: Yes (Other)
  Sender: FDA-Public Use
  Company Number: US-BAYER-2017-192415

PATIENT
  Sex: Female

DRUGS (1)
  1. MIRENA [Suspect]
     Active Substance: LEVONORGESTREL
     Dosage: 20 MCG/24HR, CONT
     Route: 015
     Dates: start: 20111012, end: 20130821

REACTIONS (6)
  - Abdominal pain lower [None]
  - Pelvic pain [None]
  - Embedded device [None]
  - Menstruation irregular [None]
  - Alopecia [None]
  - Fatigue [None]

NARRATIVE: CASE EVENT DATE: 201307
